FAERS Safety Report 6945499-1 (Version None)
Quarter: 2010Q3

REPORT INFORMATION
  Report Type: 
  Country: None (occurrence: None)
  Receive Date: 20100827
  Receipt Date: 20100716
  Transmission Date: 20110219
  Serious: No
  Sender: FDA-Public Use
  Company Number: US-PFIZER INC-2010094831

PATIENT
  Sex: Male

DRUGS (1)
  1. FRAGMIN [Suspect]
     Indication: ANTICOAGULANT THERAPY
     Dosage: 18000 IU DAILY
     Route: 058
     Dates: start: 20100709

REACTIONS (1)
  - INJECTION SITE PAIN [None]
